FAERS Safety Report 24852618 (Version 3)
Quarter: 2025Q1

REPORT INFORMATION
  Report Type: Spontaneous
  Country: FR (occurrence: FR)
  Receive Date: 20250116
  Receipt Date: 20250213
  Transmission Date: 20250408
  Serious: Yes (Other)
  Sender: MERCK SHARP & DOHME LLC
  Company Number: FR-009507513-2501FRA003519

PATIENT
  Age: 64 Year
  Sex: Male

DRUGS (5)
  1. PREVYMIS [Suspect]
     Active Substance: LETERMOVIR
     Indication: Cytomegalovirus viraemia
     Dosage: DOSE DESCRIPTION : 240 MILLIGRAM, QD?DAILY DOSE : 240 MILLIGRAM?STRENGTH: 480 MILLIGRAM
     Route: 048
     Dates: end: 202501
  2. PREVYMIS [Suspect]
     Active Substance: LETERMOVIR
     Indication: Cytomegalovirus viraemia
     Dosage: DOSE DESCRIPTION : 240 MILLIGRAM, QD, (480 MG TABLETS SPLIT INTO 2 PARTS, 1/2 TABLET DAILY)?DAILY...
     Route: 048
     Dates: start: 20250111, end: 20250113
  3. VALACYCLOVIR HYDROCHLORIDE [Concomitant]
     Active Substance: VALACYCLOVIR HYDROCHLORIDE
     Indication: Transplant
     Dosage: 2 (UNITS NOT PROVIDED), DAILY; STRENGTH: 500 (UNIT NOT PROVIDED)
     Dates: start: 202408
  4. BACTRIM [Concomitant]
     Active Substance: SULFAMETHOXAZOLE\TRIMETHOPRIM
     Indication: Transplant
  5. NEORAL [Concomitant]
     Active Substance: CYCLOSPORINE
     Indication: Transplant
     Dosage: 2 (UNITS NOT PROVIDED), DAILY; STRENGTH: 75 MG
     Dates: start: 202408

REACTIONS (6)
  - Graft versus host disease in skin [Recovering/Resolving]
  - Oesophagitis [Recovering/Resolving]
  - Insomnia [Recovering/Resolving]
  - Wrong technique in product usage process [Unknown]
  - Product availability issue [Unknown]
  - Gastritis [Recovering/Resolving]

NARRATIVE: CASE EVENT DATE: 20250101
